FAERS Safety Report 16529481 (Version 1)
Quarter: 2019Q3

REPORT INFORMATION
  Report Type: Spontaneous
  Country: GB (occurrence: GB)
  Receive Date: 20190704
  Receipt Date: 20190704
  Transmission Date: 20191004
  Serious: Yes (Other)
  Sender: FDA-Public Use
  Company Number: GB-GLAXOSMITHKLINE-GB2019119993

PATIENT
  Age: 33 Year
  Sex: Male
  Weight: 79 kg

DRUGS (1)
  1. MEPOLIZUMAB [Suspect]
     Active Substance: MEPOLIZUMAB
     Indication: PRODUCT USED FOR UNKNOWN INDICATION
     Dosage: 100 MG, UNK
     Route: 058
     Dates: start: 20180122, end: 20190517

REACTIONS (6)
  - Skin mass [Unknown]
  - Skin infection [Recovering/Resolving]
  - Pain [Recovering/Resolving]
  - Paraesthesia [Recovering/Resolving]
  - Skin fissures [Recovering/Resolving]
  - Wound infection [Unknown]
